FAERS Safety Report 23666195 (Version 1)
Quarter: 2024Q1

REPORT INFORMATION
  Report Type: Spontaneous
  Country: IN (occurrence: IN)
  Receive Date: 20240324
  Receipt Date: 20240324
  Transmission Date: 20240410
  Serious: Yes (Hospitalization, Other)
  Sender: FDA-Public Use
  Company Number: IN-STRIDES ARCOLAB LIMITED-2024SP003326

PATIENT
  Age: 41 Year
  Sex: Male

DRUGS (2)
  1. PREDNISOLONE [Suspect]
     Active Substance: PREDNISOLONE
     Indication: Glomerulonephritis rapidly progressive
     Dosage: 1 MILLIGRAM/KILOGRAM/DAY
     Route: 065
  2. PREDNISOLONE [Suspect]
     Active Substance: PREDNISOLONE
     Indication: Pulmonary renal syndrome

REACTIONS (7)
  - Acute kidney injury [Recovered/Resolved]
  - Nocardiosis [Recovered/Resolved]
  - Pulmonary nocardiosis [Recovered/Resolved]
  - Cerebral nocardiosis [Recovered/Resolved]
  - Cutaneous nocardiosis [Recovered/Resolved]
  - Condition aggravated [Unknown]
  - Drug ineffective [Unknown]
